FAERS Safety Report 9443017 (Version 2)
Quarter: 2013Q3

REPORT INFORMATION
  Report Type: Report from Study
  Country: US (occurrence: US)
  Receive Date: 20130806
  Receipt Date: 20130916
  Transmission Date: 20140515
  Serious: Yes (Hospitalization)
  Sender: FDA-Public Use
  Company Number: US-ACTELION-A-US2013-85868

PATIENT
  Age: 65 Year
  Sex: Male

DRUGS (3)
  1. VENTAVIS [Suspect]
     Indication: PULMONARY ARTERIAL HYPERTENSION
     Dosage: UNK
     Route: 055
     Dates: end: 2013
  2. VENTAVIS [Suspect]
     Dosage: 5 X DAILY
     Route: 055
     Dates: start: 2013
  3. LETAIRIS [Concomitant]

REACTIONS (9)
  - Cardiac arrest [Unknown]
  - Myocardial infarction [Unknown]
  - Nasopharyngitis [Unknown]
  - Cough [Unknown]
  - Cardiac failure congestive [Unknown]
  - Pneumonia [Unknown]
  - Syncope [Unknown]
  - Dyspnoea [Unknown]
  - Respiratory tract infection [Unknown]
